FAERS Safety Report 5614859-3 (Version None)
Quarter: 2008Q1

REPORT INFORMATION
  Report Type: 
  Country: None (occurrence: None)
  Receive Date: 20080131
  Receipt Date: 20080115
  Transmission Date: 20080703
  Serious: Yes (Hospitalization)
  Sender: FDA-Public Use
  Company Number: DSA_31332_2008

PATIENT
  Age: 24 Month

DRUGS (1)
  1. LORAZEPAM [Suspect]
     Dosage: (2 MG 1X ORAL)
     Route: 048
     Dates: start: 20080115, end: 20080115

REACTIONS (1)
  - ACCIDENTAL DRUG INTAKE BY CHILD [None]
